FAERS Safety Report 20201034 (Version 1)
Quarter: 2021Q4

REPORT INFORMATION
  Report Type: Report from Study
  Country: US (occurrence: US)
  Receive Date: 20211217
  Receipt Date: 20211217
  Transmission Date: 20220303
  Serious: Yes (Other)
  Sender: FDA-Public Use
  Company Number: US-JAZZ-2021-US-022164

PATIENT
  Sex: Female

DRUGS (13)
  1. XYREM [Suspect]
     Active Substance: SODIUM OXYBATE
     Indication: Narcolepsy
     Dosage: 2.25 GRAM, BID
     Route: 048
     Dates: start: 201004, end: 201004
  2. XYREM [Suspect]
     Active Substance: SODIUM OXYBATE
     Indication: Cataplexy
     Dosage: DOSE ADJUSTMENTS
     Route: 048
     Dates: start: 201005, end: 201010
  3. XYREM [Suspect]
     Active Substance: SODIUM OXYBATE
     Dosage: 2.25 GRAM, FIRST DOSE
     Route: 048
     Dates: start: 201010, end: 201102
  4. XYREM [Suspect]
     Active Substance: SODIUM OXYBATE
     Dosage: 4.5 GRAM, SECOND DOSE
     Route: 048
     Dates: start: 201010, end: 201102
  5. XYREM [Suspect]
     Active Substance: SODIUM OXYBATE
     Dosage: 2.25 GRAM, BID
     Route: 048
     Dates: start: 201409, end: 201410
  6. XYREM [Suspect]
     Active Substance: SODIUM OXYBATE
     Dosage: DOSE ADJUSTMENTS
     Route: 048
     Dates: start: 201410, end: 201702
  7. XYREM [Suspect]
     Active Substance: SODIUM OXYBATE
     Dosage: 4.5 GRAM, BID
     Route: 048
     Dates: start: 201702
  8. FLUDROCORTISONE [Concomitant]
     Active Substance: FLUDROCORTISONE
     Dosage: 0000
     Dates: start: 20160701
  9. DEXTROAMPHETAMINE SULFATE [Concomitant]
     Active Substance: DEXTROAMPHETAMINE SULFATE
     Dosage: 0000
     Dates: start: 20140729
  10. SERTRALINE HYDROCHLORIDE [Concomitant]
     Active Substance: SERTRALINE HYDROCHLORIDE
     Dosage: 0000
     Dates: start: 20140729
  11. VIVELLE-DOT [Concomitant]
     Active Substance: ESTRADIOL
     Dosage: 0000
     Dates: start: 20150101
  12. KEFLEX [Concomitant]
     Active Substance: CEPHALEXIN
     Dosage: 0000
     Dates: start: 20190211
  13. IBUPROFEN [Concomitant]
     Active Substance: IBUPROFEN

REACTIONS (6)
  - Adrenal adenoma [Unknown]
  - Orthostatic hypotension [Unknown]
  - Peripheral vascular disorder [Unknown]
  - Hyperlipidaemia [Unknown]
  - Restless legs syndrome [Unknown]
  - Dehydration [Unknown]
